FAERS Safety Report 5687429-9 (Version None)
Quarter: 2008Q1

REPORT INFORMATION
  Report Type: 
  Country: None (occurrence: None)
  Receive Date: 20080328
  Receipt Date: 20070426
  Transmission Date: 20080703
  Serious: No
  Sender: FDA-Public Use
  Company Number: US-BAYER-US-2007-014047

PATIENT
  Age: 31 Year
  Sex: Female
  Weight: 48 kg

DRUGS (1)
  1. MIRENA [Suspect]
     Indication: CONTRACEPTION
     Dates: start: 20060711

REACTIONS (9)
  - ABDOMINAL DISTENSION [None]
  - ABDOMINAL PAIN [None]
  - ACNE CYSTIC [None]
  - DEPRESSED MOOD [None]
  - DIARRHOEA [None]
  - INSOMNIA [None]
  - LIBIDO DECREASED [None]
  - MENOMETRORRHAGIA [None]
  - MOOD ALTERED [None]
